FAERS Safety Report 14933606 (Version 1)
Quarter: 2018Q2

REPORT INFORMATION
  Report Type: Spontaneous
  Country: US (occurrence: US)
  Receive Date: 20180504
  Receipt Date: 20180504
  Transmission Date: 20180711
  Serious: Yes (Disabling, Other)
  Sender: FDA-Public Use
  Company Number: None

PATIENT
  Age: 87 Year
  Sex: Female
  Weight: 73.8 kg

DRUGS (1)
  1. NITROFURANTOIN MONO-MCR 100 MG., OBLONG, IVORY/BLACK [Suspect]
     Active Substance: NITROFURANTOIN\NITROFURANTOIN MONOHYDRATE
     Indication: ESCHERICHIA URINARY TRACT INFECTION
     Dosage: ?          QUANTITY:10 CAPSULE(S);?
     Route: 048
     Dates: start: 20180501, end: 20180502

REACTIONS (10)
  - Abdominal discomfort [None]
  - Syncope [None]
  - Dizziness [None]
  - Nausea [None]
  - Confusional state [None]
  - Asthenia [None]
  - Fall [None]
  - Headache [None]
  - Gait inability [None]
  - Loss of consciousness [None]

NARRATIVE: CASE EVENT DATE: 20180501
